FAERS Safety Report 7361545-8 (Version None)
Quarter: 2011Q1

REPORT INFORMATION
  Report Type: 
  Country: None (occurrence: None)
  Receive Date: 20110318
  Receipt Date: 20110310
  Transmission Date: 20110831
  Serious: Yes (Other)
  Sender: FDA-Public Use
  Company Number: US-ROCHE-734469

PATIENT
  Sex: Male
  Weight: 68 kg

DRUGS (1)
  1. ACCUTANE [Suspect]
     Indication: ACNE
     Route: 065
     Dates: start: 20050101, end: 20060101

REACTIONS (5)
  - DIARRHOEA [None]
  - GASTRITIS [None]
  - ABDOMINAL PAIN UPPER [None]
  - ARTHRALGIA [None]
  - IRRITABLE BOWEL SYNDROME [None]
